FAERS Safety Report 16704700 (Version 1)
Quarter: 2019Q3

REPORT INFORMATION
  Report Type: Spontaneous
  Country: US (occurrence: US)
  Receive Date: 20190814
  Receipt Date: 20190814
  Transmission Date: 20191004
  Serious: Yes (Hospitalization)
  Sender: FDA-Public Use
  Company Number: PHEH2019US033051

PATIENT
  Age: 71 Year
  Sex: Female

DRUGS (1)
  1. ENTRESTO [Suspect]
     Active Substance: SACUBITRIL\VALSARTAN
     Indication: PRODUCT USED FOR UNKNOWN INDICATION
     Dosage: 50 MG, BID(24/26 MG)
     Route: 048
     Dates: start: 20190805, end: 20190807

REACTIONS (3)
  - Hypotension [Recovering/Resolving]
  - Lip pruritus [Not Recovered/Not Resolved]
  - Tongue pruritus [Not Recovered/Not Resolved]
